FAERS Safety Report 22389940 (Version 1)
Quarter: 2023Q2

REPORT INFORMATION
  Report Type: Spontaneous
  Country: US (occurrence: None)
  Receive Date: 20230530
  Receipt Date: 20230530
  Transmission Date: 20230722
  Serious: No
  Sender: FDA-Public Use
  Company Number: None

PATIENT
  Age: 71 Year
  Sex: Male
  Weight: 98.43 kg

DRUGS (4)
  1. TALTZ [Suspect]
     Active Substance: IXEKIZUMAB
     Indication: Psoriasis
     Dosage: OTHER FREQUENCY : EVERY OTHER WEEK;?
     Route: 058
     Dates: start: 20230428
  2. VALSARTAN [Concomitant]
     Active Substance: VALSARTAN
     Dates: start: 20230424
  3. ROSUVASTATIN [Concomitant]
     Active Substance: ROSUVASTATIN
     Dates: start: 20230424
  4. METOPROLOL [Concomitant]
     Active Substance: METOPROLOL
     Dates: start: 20230424

REACTIONS (3)
  - Oropharyngeal pain [None]
  - Injection related reaction [None]
  - Streptococcus test positive [None]

NARRATIVE: CASE EVENT DATE: 20230517
